FAERS Safety Report 25600782 (Version 1)
Quarter: 2025Q3

REPORT INFORMATION
  Report Type: Spontaneous
  Country: US (occurrence: US)
  Receive Date: 20250724
  Receipt Date: 20250724
  Transmission Date: 20251021
  Serious: No
  Sender: ZYDUS PHARM
  Company Number: US-CADILA HEALTHCARE LIMITED-US-ZYDUS-126095

PATIENT

DRUGS (3)
  1. BOSENTAN [Suspect]
     Active Substance: BOSENTAN
     Indication: Systemic scleroderma
     Route: 048
     Dates: start: 202207
  2. BOSENTAN [Suspect]
     Active Substance: BOSENTAN
     Indication: Product use in unapproved indication
     Route: 048
  3. SILDENAFIL CITRATE [Concomitant]
     Active Substance: SILDENAFIL CITRATE
     Indication: Product used for unknown indication
     Route: 065

REACTIONS (4)
  - Liver function test increased [Recovered/Resolved]
  - Skin ulcer [Unknown]
  - Product use in unapproved indication [Not Recovered/Not Resolved]
  - Wrong dose [Recovered/Resolved]
